FAERS Safety Report 6721147-0 (Version None)
Quarter: 2010Q2

REPORT INFORMATION
  Report Type: 
  Country: None (occurrence: None)
  Receive Date: 20100512
  Receipt Date: 20100506
  Transmission Date: 20101027
  Serious: Yes (Other)
  Sender: FDA-Public Use
  Company Number: US-BAYER-201015111BCC

PATIENT
  Age: 47 Year
  Sex: Male
  Weight: 95 kg

DRUGS (1)
  1. ALEVE (CAPLET) [Suspect]
     Indication: DRUG USE FOR UNKNOWN INDICATION
     Dosage: UNIT DOSE: 220 MG
     Route: 048
     Dates: start: 20100506

REACTIONS (6)
  - ASTHENOPIA [None]
  - HYPERHIDROSIS [None]
  - NAUSEA [None]
  - OCULAR DISCOMFORT [None]
  - PRURITUS GENERALISED [None]
  - URTICARIA [None]
